FAERS Safety Report 25947463 (Version 1)
Quarter: 2025Q4

REPORT INFORMATION
  Report Type: Spontaneous
  Country: CA (occurrence: CA)
  Receive Date: 20251022
  Receipt Date: 20251022
  Transmission Date: 20260118
  Serious: Yes (Hospitalization)
  Sender: SANDOZ
  Company Number: CA-SANDOZ-SDZ2025CA077271

PATIENT
  Age: 69 Year
  Sex: Male

DRUGS (1)
  1. HEPARIN SODIUM [Suspect]
     Active Substance: HEPARIN SODIUM
     Indication: Product used for unknown indication
     Dosage: UNK
     Route: 042

REACTIONS (4)
  - Amaurosis fugax [Recovered/Resolved]
  - Post procedural pulmonary embolism [Recovered/Resolved]
  - Thrombophlebitis [Recovered/Resolved]
  - Heparin-induced thrombocytopenia [Recovered/Resolved]
